FAERS Safety Report 12975376 (Version 3)
Quarter: 2016Q4

REPORT INFORMATION
  Report Type: Spontaneous
  Country: GB (occurrence: GB)
  Receive Date: 20161125
  Receipt Date: 20161220
  Transmission Date: 20170207
  Serious: Yes (Other)
  Sender: FDA-Public Use
  Company Number: GB-009507513-1611GBR011113

PATIENT
  Age: 66 Year
  Sex: Female

DRUGS (3)
  1. LOSARTAN POTASSIUM. [Suspect]
     Active Substance: LOSARTAN POTASSIUM
     Dosage: 50 MILLIGRAM DAILY;
     Route: 048
     Dates: start: 20161020
  2. CHLORAMPHENICOL [Concomitant]
     Active Substance: CHLORAMPHENICOL
     Dates: start: 20161020
  3. FLOXACILLIN [Suspect]
     Active Substance: FLUCLOXACILLIN
     Dosage: 2000 MILLIGRAM DAILY;
     Route: 048
     Dates: start: 20161020

REACTIONS (13)
  - Choking [Unknown]
  - Sensation of foreign body [Unknown]
  - Confusional state [Unknown]
  - Dizziness [Recovered/Resolved]
  - Accidental exposure to product packaging [Unknown]
  - Obstructive airways disorder [Unknown]
  - Visual impairment [Unknown]
  - Loss of consciousness [Unknown]
  - Nasal obstruction [Unknown]
  - Feeling abnormal [Unknown]
  - Eye contusion [Unknown]
  - Cough [Unknown]
  - Balance disorder [Unknown]

NARRATIVE: CASE EVENT DATE: 20161020
